FAERS Safety Report 11171935 (Version 1)
Quarter: 2015Q2

REPORT INFORMATION
  Report Type: Spontaneous
  Country: LT (occurrence: LT)
  Receive Date: 20150608
  Receipt Date: 20150608
  Transmission Date: 20150821
  Serious: Yes (Life-Threatening, Hospitalization)
  Sender: FDA-Public Use
  Company Number: LT-PFIZER INC-2015187676

PATIENT
  Age: 38 Year
  Weight: 100 kg

DRUGS (2)
  1. XANAX [Suspect]
     Active Substance: ALPRAZOLAM
     Dosage: 120 PILLS, AT THE SAME TIME
     Route: 048
     Dates: start: 20150429, end: 20150429
  2. LORAFEN [Suspect]
     Active Substance: LORAZEPAM
     Dosage: 60 PILLS, AT THE SAME TIME
     Route: 048
     Dates: start: 20150429, end: 20150429

REACTIONS (2)
  - Intentional overdose [Recovered/Resolved]
  - Suicide attempt [Recovered/Resolved]

NARRATIVE: CASE EVENT DATE: 20150429
